FAERS Safety Report 8326671-5 (Version None)
Quarter: 2012Q2

REPORT INFORMATION
  Report Type: 
  Country: None (occurrence: None)
  Receive Date: 20120501
  Receipt Date: 20120424
  Transmission Date: 20120825
  Serious: No
  Sender: FDA-Public Use
  Company Number: US-B.I. PHARMACEUTICALS,INC./RIDGEFIELD-2012-BP-09376BP

PATIENT
  Sex: Female

DRUGS (10)
  1. ALPHAGAN [Concomitant]
     Indication: GLAUCOMA
     Dates: start: 20020101
  2. HYDROCHLOROTHIAZIDE [Concomitant]
     Indication: CARDIAC FAILURE CONGESTIVE
     Dosage: 12.5 MG
     Route: 048
     Dates: start: 20110801
  3. DIGOXIN [Concomitant]
     Indication: HEART RATE INCREASED
     Dosage: 0.125 MG
     Route: 048
     Dates: start: 20110801
  4. METOPROLOL TARTRATE [Concomitant]
     Dosage: 100 MG
     Route: 048
     Dates: start: 20110801
  5. PRADAXA [Suspect]
     Indication: ATRIAL FIBRILLATION
     Dosage: 150 MG
     Route: 048
     Dates: start: 20111101
  6. TRAVATAN [Concomitant]
     Indication: GLAUCOMA
  7. LISINOPRIL [Concomitant]
     Indication: HYPERTENSION
     Dosage: 40 MG
     Route: 048
     Dates: start: 20070101
  8. PREDNISOLONE 1.0% [Concomitant]
     Indication: KERATOCONUS
     Dates: start: 19880101
  9. PANTOPRAZOLE [Concomitant]
     Indication: HIATUS HERNIA
     Dosage: 40 MG
     Route: 048
     Dates: start: 20070101
  10. TIMOLOL MALEATE [Concomitant]
     Indication: GLAUCOMA
     Dates: start: 20020101

REACTIONS (2)
  - OEDEMA PERIPHERAL [None]
  - PAIN IN EXTREMITY [None]
